FAERS Safety Report 26165162 (Version 2)
Quarter: 2025Q4

REPORT INFORMATION
  Report Type: Spontaneous
  Country: JP (occurrence: JP)
  Receive Date: 20251216
  Receipt Date: 20251222
  Transmission Date: 20260117
  Serious: Yes (Death, Hospitalization, Other)
  Sender: INCYTE
  Company Number: JP-002147023-PHJP2018JP011551

PATIENT
  Age: 55 Year

DRUGS (2)
  1. RUXOLITINIB [Suspect]
     Active Substance: RUXOLITINIB
     Indication: Primary myelofibrosis
     Dosage: 10 MG, BID
     Route: 061
  2. HUMAN RED BLOOD CELL [Concomitant]
     Active Substance: HUMAN RED BLOOD CELL
     Indication: Primary myelofibrosis
     Dosage: 2 IU, UNK
     Route: 065

REACTIONS (2)
  - Transplantation complication [Fatal]
  - Withdrawal syndrome [Unknown]
